FAERS Safety Report 12304426 (Version 2)
Quarter: 2016Q2

REPORT INFORMATION
  Report Type: Spontaneous
  Country: US (occurrence: US)
  Receive Date: 20160426
  Receipt Date: 20160504
  Transmission Date: 20160815
  Serious: No
  Sender: FDA-Public Use
  Company Number: PHEH2016US009909

PATIENT
  Sex: Female

DRUGS (1)
  1. VOTRIENT [Suspect]
     Active Substance: PAZOPANIB HYDROCHLORIDE
     Indication: RENAL CELL CARCINOMA
     Dosage: 400 MG, QD
     Route: 048
     Dates: start: 20160405

REACTIONS (6)
  - Dyspnoea [Unknown]
  - Hypertension [Unknown]
  - Pruritus [Unknown]
  - Liver disorder [Unknown]
  - Fatigue [Unknown]
  - Blood electrolytes abnormal [Unknown]
